FAERS Safety Report 7157704-X (Version None)
Quarter: 2010Q4

REPORT INFORMATION
  Report Type: 
  Country: None (occurrence: None)
  Receive Date: 20101214
  Receipt Date: 20100318
  Transmission Date: 20110411
  Serious: No
  Sender: FDA-Public Use
  Company Number: US-ASTRAZENECA-2010SE11919

PATIENT
  Age: 71 Year
  Sex: Male
  Weight: 109.3 kg

DRUGS (2)
  1. CRESTOR [Suspect]
     Indication: BLOOD CHOLESTEROL
     Route: 048
     Dates: start: 20100317
  2. ASPIRIN [Concomitant]

REACTIONS (2)
  - AMNESIA [None]
  - SNEEZING [None]
